FAERS Safety Report 24460705 (Version 2)
Quarter: 2024Q4

REPORT INFORMATION
  Report Type: Other
  Country: GR (occurrence: GR)
  Receive Date: 20241018
  Receipt Date: 20241030
  Transmission Date: 20250115
  Serious: Yes (Hospitalization)
  Sender: ALVOGEN
  Company Number: GR-ALVOGEN-2024095664

PATIENT
  Age: 17 Year
  Sex: Male
  Weight: 118 kg

DRUGS (10)
  1. GABAPENTIN [Suspect]
     Active Substance: GABAPENTIN
     Indication: Analgesic therapy
     Dosage: ONCE, TWICE, OR THREE TIMES A DAY, DEPENDING ON THE PATIENT?S PAIN LEVELS
  2. GABAPENTIN [Suspect]
     Active Substance: GABAPENTIN
     Indication: Analgesic therapy
     Dosage: TWICE DAILY (DURING THE HOSPITALIZATION FOR THE PROSTHESIS?S REVISION)
  3. GABAPENTIN [Suspect]
     Active Substance: GABAPENTIN
     Indication: Analgesic therapy
     Dosage: ONCE DAILY (FOLLOWING THE DETECTION OF ADRENAL INSUFFICIENCY)
  4. VANCOMYCIN [Concomitant]
     Active Substance: VANCOMYCIN
     Indication: Prophylactic chemotherapy
     Dosage: FOUR TIMES DAILY, FIRST PRE-OPERATIVE DAY
     Route: 042
  5. VANCOMYCIN [Concomitant]
     Active Substance: VANCOMYCIN
     Indication: Prophylactic chemotherapy
     Dosage: FOUR TIMES DAILY, ALONG WITH CEFEPIME AT 2 G 3 TIMES DAILY FOR 2 DAYS
     Route: 042
  6. VANCOMYCIN [Concomitant]
     Active Substance: VANCOMYCIN
     Indication: Prophylactic chemotherapy
     Dosage: FOUR TIMES DAILY, AFTER THE FIRST DEBRIDEMENT OF THE SECOND MEGAPROSTHESIS
  7. VANCOMYCIN [Concomitant]
     Active Substance: VANCOMYCIN
     Indication: Prophylactic chemotherapy
     Dosage: FOUR TIMES DAILY, FOLLOWING THE SECOND DEBRIDEMENT
  8. CEFEPIME [Concomitant]
     Active Substance: CEFEPIME HYDROCHLORIDE
     Indication: Prophylactic chemotherapy
     Dosage: THREE TIMES DAILY FOR TWO DAYS ALONG WITH VANCOMYCIN (500 MG, 4 TIMES DAILY, IV)
  9. RIFAMPIN [Concomitant]
     Active Substance: RIFAMPIN
     Indication: Prophylactic chemotherapy
     Dosage: FOR 16 DAYS
  10. Low-molecular-weight heparin (LMWH) [Concomitant]
     Indication: Anticoagulant therapy
     Dosage: AT THERAPEUTIC DOSES

REACTIONS (5)
  - Adrenal insufficiency [Recovered/Resolved]
  - Glucocorticoid deficiency [Recovered/Resolved]
  - Staphylococcal infection [Recovered/Resolved]
  - Immunosuppression [Unknown]
  - Off label use [Unknown]
